FAERS Safety Report 13188201 (Version 1)
Quarter: 2017Q1

REPORT INFORMATION
  Report Type: Spontaneous
  Country: AR (occurrence: AR)
  Receive Date: 20170206
  Receipt Date: 20170206
  Transmission Date: 20170428
  Serious: Yes (Other)
  Sender: FDA-Public Use
  Company Number: AR-VIIV HEALTHCARE LIMITED-AR2017GSK016403

PATIENT
  Age: 49 Year
  Sex: Female

DRUGS (5)
  1. EFAVIRENZ [Interacting]
     Active Substance: EFAVIRENZ
     Indication: HIV INFECTION
  2. LAMIVUDINE. [Suspect]
     Active Substance: LAMIVUDINE
     Indication: HIV INFECTION
  3. ZIDOVUDINE. [Interacting]
     Active Substance: ZIDOVUDINE
     Indication: HIV INFECTION
  4. NEVIRAPINE. [Interacting]
     Active Substance: NEVIRAPINE
     Indication: HIV INFECTION
  5. EQUISETUM ARVENSE [Interacting]
     Active Substance: EQUISETUM ARVENSE TOP

REACTIONS (2)
  - Blood HIV RNA increased [Recovered/Resolved]
  - Drug interaction [Unknown]
